FAERS Safety Report 8123438 (Version 5)
Quarter: 2015Q2

REPORT INFORMATION
  Report Type: Spontaneous
  Country: US (occurrence: US)
  Receive Date: 20110907
  Receipt Date: 20150429
  Transmission Date: 20150821
  Serious: Yes (Hospitalization, Other)
  Sender: FDA-Public Use
  Company Number: US-MERCK-1109USA00302

PATIENT
  Sex: Female
  Weight: 86.17 kg

DRUGS (4)
  1. FOSAMAX [Suspect]
     Active Substance: ALENDRONATE SODIUM
     Indication: OSTEOPENIA
     Dosage: 70 MG, UNK
     Route: 048
     Dates: start: 20061206, end: 20100226
  2. ALENDRONATE SODIUM. [Suspect]
     Active Substance: ALENDRONATE SODIUM
     Indication: BREAST CANCER
     Dosage: 70 MG, QD
     Route: 048
     Dates: start: 200812, end: 20100324
  3. ARIMIDEX [Concomitant]
     Active Substance: ANASTROZOLE
     Indication: BREAST CANCER
     Dosage: UNK
     Dates: start: 20061206, end: 20100608
  4. PREDNISONE. [Concomitant]
     Active Substance: PREDNISONE
     Indication: CROHN^S DISEASE
     Dosage: 15 MG, QD
     Dates: start: 1980

REACTIONS (22)
  - Osteoarthritis [Unknown]
  - Vascular calcification [Unknown]
  - Sleep apnoea syndrome [Unknown]
  - Gastrooesophageal reflux disease [Unknown]
  - Senile osteoporosis [Unknown]
  - Chronic obstructive pulmonary disease [Not Recovered/Not Resolved]
  - Tonsillectomy [Unknown]
  - Constipation [Unknown]
  - Femur fracture [Recovering/Resolving]
  - Intervertebral disc displacement [Unknown]
  - Macrocytosis [Unknown]
  - Fall [Unknown]
  - Hypertension [Unknown]
  - Hyperlipidaemia [Unknown]
  - Mean cell volume increased [Unknown]
  - Laboratory test abnormal [Unknown]
  - Arthropathy [Unknown]
  - Trigeminal neuralgia [Unknown]
  - Asthma [Unknown]
  - Intramedullary rod insertion [Unknown]
  - Large intestine polyp [Unknown]
  - Herpes zoster [Unknown]

NARRATIVE: CASE EVENT DATE: 20100216
